FAERS Safety Report 19817233 (Version 1)
Quarter: 2021Q3

REPORT INFORMATION
  Report Type: Spontaneous
  Country: FR (occurrence: FR)
  Receive Date: 20210910
  Receipt Date: 20210910
  Transmission Date: 20211014
  Serious: Yes (Other)
  Sender: FDA-Public Use
  Company Number: FR-TAKEDA-2021TJP085340

PATIENT
  Age: 64 Year
  Sex: Female

DRUGS (3)
  1. PYOSTACINE [Interacting]
     Active Substance: PRISTINAMYCIN
     Indication: PNEUMONIA
     Dosage: 3 G
     Route: 048
     Dates: start: 20210805
  2. LANSOPRAZOLE. [Suspect]
     Active Substance: LANSOPRAZOLE
     Indication: PROPHYLAXIS AGAINST GASTROINTESTINAL ULCER
     Dosage: 30 MG
     Route: 048
     Dates: start: 20210807
  3. PROGRAF [Interacting]
     Active Substance: TACROLIMUS
     Indication: PROPHYLAXIS AGAINST TRANSPLANT REJECTION
     Dosage: 6.5 MG
     Route: 048
     Dates: start: 20210805

REACTIONS (2)
  - Immunosuppressant drug level increased [Recovered/Resolved]
  - Renal impairment [Recovering/Resolving]

NARRATIVE: CASE EVENT DATE: 20210809
